FAERS Safety Report 7817358-3 (Version None)
Quarter: 2011Q4

REPORT INFORMATION
  Report Type: 
  Country: None (occurrence: None)
  Receive Date: 20111017
  Receipt Date: 20111004
  Transmission Date: 20120403
  Serious: Yes (Hospitalization, Other)
  Sender: FDA-Public Use
  Company Number: US-ELI_LILLY_AND_COMPANY-US201110001685

PATIENT
  Sex: Female
  Weight: 56.6 kg

DRUGS (13)
  1. COLACE [Concomitant]
     Dosage: UNK, BID
  2. ZOLOFT [Concomitant]
     Dosage: 50 MG, BID
  3. ALDACTONE [Concomitant]
     Dosage: 100 MG, QD
  4. CALCIUM CARBONATE [Concomitant]
  5. DILAUDID [Concomitant]
     Dosage: UNK, PRN
  6. VITAMIN D [Concomitant]
     Dosage: 50000 MG, WEEKLY (1/W)
  7. BUMEX [Concomitant]
     Dosage: 1 MG, QD
  8. FORTEO [Suspect]
     Dosage: 20 UG, QD
  9. NEXIUM [Concomitant]
     Dosage: UNK, QD
  10. MIDODRINE HYDROCHLORIDE [Concomitant]
     Dosage: 5 MG, TID
  11. LACTULOSE [Concomitant]
     Dosage: 30 MG, BID
  12. FORTEO [Suspect]
     Indication: OSTEOPOROSIS
     Dosage: 20 UG, QD
     Dates: start: 20110805
  13. VITAMIN TAB [Concomitant]

REACTIONS (4)
  - MUSCULAR WEAKNESS [None]
  - INTESTINAL OBSTRUCTION [None]
  - MUSCLE ATROPHY [None]
  - WEIGHT DECREASED [None]
